FAERS Safety Report 20512282 (Version 1)
Quarter: 2022Q1

REPORT INFORMATION
  Report Type: Spontaneous
  Country: US (occurrence: US)
  Receive Date: 20220224
  Receipt Date: 20220224
  Transmission Date: 20220423
  Serious: No
  Sender: FDA-Public Use
  Company Number: US-MYLANLABS-2022M1010628

PATIENT
  Sex: Female
  Weight: 81.6 kg

DRUGS (2)
  1. WIXELA INHUB [Suspect]
     Active Substance: FLUTICASONE PROPIONATE\SALMETEROL XINAFOATE
     Indication: Asthma
     Dosage: 250/50 MICROGRAM, BID,ONE PUFF TWICE A DAY
     Route: 055
     Dates: start: 2021
  2. WIXELA INHUB [Suspect]
     Active Substance: FLUTICASONE PROPIONATE\SALMETEROL XINAFOATE
     Dosage: 250/50 MICROGRAM, BID,ONE PUFF TWICE A DAY
     Route: 055
     Dates: start: 202201

REACTIONS (3)
  - Device malfunction [Unknown]
  - Product quality issue [Unknown]
  - Drug ineffective [Recovered/Resolved]
